FAERS Safety Report 18095909 (Version 2)
Quarter: 2020Q3

REPORT INFORMATION
  Report Type: Spontaneous
  Country: CA (occurrence: CA)
  Receive Date: 20200730
  Receipt Date: 20200730
  Transmission Date: 20201105
  Serious: Yes (Hospitalization, Congenital Anomaly, Other)
  Sender: FDA-Public Use
  Company Number: CA-PURDUE-USA-2018-0159967

PATIENT
  Age: 6 Month
  Sex: Female
  Weight: 3 kg

DRUGS (64)
  1. NON?PMN METHYLPHENIDATE HYDROCHLORIDE [Suspect]
     Active Substance: METHYLPHENIDATE HYDROCHLORIDE
     Dosage: 36 MG, DAILY (1 EVERY 1 DAYS)
     Route: 064
  2. DULOXETINE. [Suspect]
     Active Substance: DULOXETINE
     Indication: FOETAL EXPOSURE DURING PREGNANCY
     Dosage: UNK
     Route: 048
  3. CYCLOBENZAPRINE. [Suspect]
     Active Substance: CYCLOBENZAPRINE
     Indication: MATERNAL EXPOSURE TIMING UNSPECIFIED
  4. DOMPERIDONE [Suspect]
     Active Substance: DOMPERIDONE
     Indication: MATERNAL EXPOSURE TIMING UNSPECIFIED
     Dosage: UNK
     Route: 064
  5. INSULIN [Suspect]
     Active Substance: INSULIN NOS
     Indication: MATERNAL EXPOSURE TIMING UNSPECIFIED
  6. IRON SULPHATE [Suspect]
     Active Substance: FERROUS SULFATE ANHYDROUS
     Indication: MATERNAL EXPOSURE TIMING UNSPECIFIED
     Dosage: UNK
     Route: 064
  7. IRON SULPHATE [Suspect]
     Active Substance: FERROUS SULFATE ANHYDROUS
     Indication: FOETAL EXPOSURE DURING PREGNANCY
  8. LEVOTHYROXINE. [Suspect]
     Active Substance: LEVOTHYROXINE
     Indication: MATERNAL EXPOSURE TIMING UNSPECIFIED
     Dosage: UNK
     Route: 064
  9. DULOXETINE TEVA [Suspect]
     Active Substance: DULOXETINE HYDROCHLORIDE
     Indication: MATERNAL EXPOSURE TIMING UNSPECIFIED
     Dosage: 90 MG, UNK
     Route: 064
  10. DULOXETINE TEVA [Suspect]
     Active Substance: DULOXETINE HYDROCHLORIDE
     Indication: DEPRESSION
  11. CYCLOBENZAPRINE. [Suspect]
     Active Substance: CYCLOBENZAPRINE
     Indication: MATERNAL EXPOSURE TIMING UNSPECIFIED
     Dosage: UNK
     Route: 064
  12. URSODIOL. [Suspect]
     Active Substance: URSODIOL
     Indication: FOETAL EXPOSURE DURING PREGNANCY
     Dosage: UNK
     Route: 064
  13. DOMPERIDONE [Suspect]
     Active Substance: DOMPERIDONE
     Indication: LACTATION DISORDER
     Dosage: UNK
     Route: 048
  14. LEVOTHYROXINE. [Suspect]
     Active Substance: LEVOTHYROXINE
     Indication: PRODUCT USED FOR UNKNOWN INDICATION
     Dosage: UNK
     Route: 065
  15. URSO [Suspect]
     Active Substance: URSODIOL
     Indication: MATERNAL EXPOSURE TIMING UNSPECIFIED
     Dosage: UNK
     Route: 064
  16. URSODEOXYCHOLIC ACID [Suspect]
     Active Substance: URSODIOL
     Indication: MATERNAL EXPOSURE TIMING UNSPECIFIED
  17. NON?PMN METHYLPHENIDATE HYDROCHLORIDE [Suspect]
     Active Substance: METHYLPHENIDATE HYDROCHLORIDE
     Dosage: UNK
     Route: 048
  18. NON?PMN METHYLPHENIDATE HYDROCHLORIDE [Suspect]
     Active Substance: METHYLPHENIDATE HYDROCHLORIDE
     Dosage: UNK
     Route: 064
  19. OMEPRAZOLE. [Suspect]
     Active Substance: OMEPRAZOLE
     Indication: FOETAL EXPOSURE DURING PREGNANCY
     Dosage: UNK
     Route: 048
  20. DOMPERIDONE [Suspect]
     Active Substance: DOMPERIDONE
     Indication: LACTATION DISORDER
     Dosage: UNK
     Route: 048
  21. INSULIN [Suspect]
     Active Substance: INSULIN NOS
     Indication: FOETAL EXPOSURE DURING PREGNANCY
  22. DULOXETINE TEVA [Suspect]
     Active Substance: DULOXETINE HYDROCHLORIDE
     Indication: DEPRESSION
  23. URSODEOXYCHOLIC ACID [Suspect]
     Active Substance: URSODIOL
     Indication: FOETAL EXPOSURE DURING PREGNANCY
     Dosage: UNK
     Route: 065
  24. URSODIOL. [Suspect]
     Active Substance: URSODIOL
     Indication: MATERNAL EXPOSURE TIMING UNSPECIFIED
  25. CYCLOBENZAPRINE. [Suspect]
     Active Substance: CYCLOBENZAPRINE
     Indication: PRODUCT USED FOR UNKNOWN INDICATION
     Dosage: UNK
     Route: 048
  26. DOCUSATE SODIUM. [Suspect]
     Active Substance: DOCUSATE SODIUM
     Indication: FOETAL EXPOSURE DURING PREGNANCY
     Dosage: UNK
     Route: 064
  27. DOMPERIDONE [Suspect]
     Active Substance: DOMPERIDONE
     Indication: FOETAL EXPOSURE DURING PREGNANCY
  28. INSULIN [Suspect]
     Active Substance: INSULIN NOS
     Indication: PRODUCT USED FOR UNKNOWN INDICATION
     Dosage: UNK
     Route: 064
  29. NON?PMN METHYLPHENIDATE HYDROCHLORIDE [Suspect]
     Active Substance: METHYLPHENIDATE HYDROCHLORIDE
     Dosage: 36 MG, UNK
     Route: 064
  30. CYCLOBENZAPRINE. [Suspect]
     Active Substance: CYCLOBENZAPRINE
     Indication: FOETAL EXPOSURE DURING PREGNANCY
     Dosage: UNK
     Route: 048
  31. INSULIN [Suspect]
     Active Substance: INSULIN NOS
     Indication: PRODUCT USED FOR UNKNOWN INDICATION
     Dosage: UNK
     Route: 065
  32. INSULIN [Suspect]
     Active Substance: INSULIN NOS
     Indication: FOETAL EXPOSURE DURING PREGNANCY
     Dosage: UNK
     Route: 064
  33. URSODIOL. [Suspect]
     Active Substance: URSODIOL
     Indication: PRODUCT USED FOR UNKNOWN INDICATION
     Dosage: UNK
     Route: 065
  34. LEVOTHYROXINE. [Suspect]
     Active Substance: LEVOTHYROXINE
     Indication: FOETAL EXPOSURE DURING PREGNANCY
     Dosage: UNK
     Route: 064
  35. DULOXETINE TEVA [Suspect]
     Active Substance: DULOXETINE HYDROCHLORIDE
     Indication: FOETAL EXPOSURE DURING PREGNANCY
     Dosage: 90 MG, DAILY (1 EVERY 1 DAYS)
     Route: 064
  36. DULOXETINE TEVA [Suspect]
     Active Substance: DULOXETINE HYDROCHLORIDE
     Indication: MATERNAL EXPOSURE TIMING UNSPECIFIED
  37. DULOXETINE. [Suspect]
     Active Substance: DULOXETINE
     Indication: DEPRESSION
     Dosage: 90 MG, DAILY (1 EVERY 1 DAYS)
     Route: 065
  38. CYCLOBENZAPRINE. [Suspect]
     Active Substance: CYCLOBENZAPRINE
     Indication: PRODUCT USED FOR UNKNOWN INDICATION
     Dosage: UNK
     Route: 065
  39. DOCUSATE SODIUM. [Suspect]
     Active Substance: DOCUSATE SODIUM
     Indication: MATERNAL EXPOSURE TIMING UNSPECIFIED
     Dosage: UNK
     Route: 048
  40. DOCUSATE SODIUM. [Suspect]
     Active Substance: DOCUSATE SODIUM
     Indication: FOETAL EXPOSURE DURING PREGNANCY
     Dosage: UNK
     Route: 064
  41. FERROUS SULFATE. [Suspect]
     Active Substance: FERROUS SULFATE
     Indication: PRODUCT USED FOR UNKNOWN INDICATION
     Dosage: UNK
     Route: 065
  42. DOMPERIDONE [Suspect]
     Active Substance: DOMPERIDONE
     Indication: MATERNAL EXPOSURE TIMING UNSPECIFIED
     Dosage: UNK
     Route: 062
  43. LEVOTHYROXINE. [Suspect]
     Active Substance: LEVOTHYROXINE
     Indication: MATERNAL EXPOSURE TIMING UNSPECIFIED
  44. DULOXETINE TEVA [Suspect]
     Active Substance: DULOXETINE HYDROCHLORIDE
     Indication: FOETAL EXPOSURE DURING PREGNANCY
  45. NON?PMN METHYLPHENIDATE HYDROCHLORIDE [Suspect]
     Active Substance: METHYLPHENIDATE HYDROCHLORIDE
     Dosage: 36 MG, UNK
     Route: 063
  46. FERROUS SULFATE. [Suspect]
     Active Substance: FERROUS SULFATE
     Indication: FOETAL EXPOSURE DURING PREGNANCY
     Dosage: UNK
     Route: 048
  47. INSULIN [Suspect]
     Active Substance: INSULIN NOS
     Indication: MATERNAL EXPOSURE TIMING UNSPECIFIED
     Dosage: UNK
     Route: 066
  48. DOMPERIDONE [Suspect]
     Active Substance: DOMPERIDONE
     Indication: LACTATION STIMULATION THERAPY
     Dosage: 20 MG, UNK
     Route: 064
  49. DOMPERIDONE [Suspect]
     Active Substance: DOMPERIDONE
     Indication: BREAST FEEDING
     Dosage: UNK
     Route: 064
  50. LEVOTHYROXINE. [Suspect]
     Active Substance: LEVOTHYROXINE
     Indication: PRODUCT USED FOR UNKNOWN INDICATION
     Dosage: UNK
     Route: 048
  51. DOCUSATE SODIUM. [Suspect]
     Active Substance: DOCUSATE SODIUM
     Indication: MATERNAL EXPOSURE TIMING UNSPECIFIED
  52. IRON SULPHATE [Suspect]
     Active Substance: FERROUS SULFATE ANHYDROUS
     Indication: PRODUCT USED FOR UNKNOWN INDICATION
     Dosage: UNK
     Route: 048
  53. DULOXETINE TEVA [Suspect]
     Active Substance: DULOXETINE HYDROCHLORIDE
     Indication: PRODUCT USED FOR UNKNOWN INDICATION
     Dosage: 90 MG, UNK
     Route: 063
  54. NON?PMN METHYLPHENIDATE HYDROCHLORIDE [Suspect]
     Active Substance: METHYLPHENIDATE HYDROCHLORIDE
     Indication: PRODUCT USED FOR UNKNOWN INDICATION
     Dosage: 36 MG, DAILY (1 EVERY 1 DAYS)
     Route: 065
  55. DULOXETINE. [Suspect]
     Active Substance: DULOXETINE
     Indication: MATERNAL EXPOSURE TIMING UNSPECIFIED
     Dosage: UNK UNK, DAILY (1 EVERY 1 DAYS)
     Route: 064
  56. DOCUSATE SODIUM. [Suspect]
     Active Substance: DOCUSATE SODIUM
     Indication: PRODUCT USED FOR UNKNOWN INDICATION
     Dosage: UNK
     Route: 065
  57. FERROUS SULFATE. [Suspect]
     Active Substance: FERROUS SULFATE
     Indication: MATERNAL EXPOSURE TIMING UNSPECIFIED
     Dosage: UNK
     Route: 064
  58. OMEPRAZOLE. [Suspect]
     Active Substance: OMEPRAZOLE
     Indication: PRODUCT USED FOR UNKNOWN INDICATION
     Dosage: UNK
     Route: 065
  59. OMEPRAZOLE. [Suspect]
     Active Substance: OMEPRAZOLE
     Indication: MATERNAL EXPOSURE TIMING UNSPECIFIED
     Dosage: UNK
     Route: 064
  60. DOMPERIDONE [Suspect]
     Active Substance: DOMPERIDONE
     Indication: FOETAL EXPOSURE DURING PREGNANCY
     Dosage: 20 MG, DAILY (1 EVERY 1 DAYS)
     Route: 065
  61. CYCLOBENZAPRINE. [Suspect]
     Active Substance: CYCLOBENZAPRINE
     Indication: FOETAL EXPOSURE DURING PREGNANCY
     Dosage: UNK
     Route: 064
  62. DOCUSATE SODIUM. [Suspect]
     Active Substance: DOCUSATE SODIUM
     Indication: PRODUCT USED FOR UNKNOWN INDICATION
     Dosage: UNK
     Route: 048
  63. DULOXETINE TEVA [Suspect]
     Active Substance: DULOXETINE HYDROCHLORIDE
     Indication: PRODUCT USED FOR UNKNOWN INDICATION
     Dosage: UNK
     Route: 064
  64. URSODEOXYCHOLIC ACID [Suspect]
     Active Substance: URSODIOL
     Indication: PRODUCT USED FOR UNKNOWN INDICATION
     Dosage: UNK
     Route: 064

REACTIONS (14)
  - Maternal exposure during breast feeding [Unknown]
  - Cholestasis of pregnancy [Unknown]
  - Lung cyst [Unknown]
  - Pneumonia [Unknown]
  - Congenital anomaly [Unknown]
  - Exposure during pregnancy [Unknown]
  - Exposure via breast milk [Unknown]
  - Pre-eclampsia [Unknown]
  - Somnolence [Unknown]
  - Respiratory tract malformation [Unknown]
  - Hypothyroidism [Unknown]
  - Foetal exposure during pregnancy [Unknown]
  - Pulmonary malformation [Unknown]
  - Blood pressure increased [Unknown]
